FAERS Safety Report 5961741-8 (Version None)
Quarter: 2008Q4

REPORT INFORMATION
  Report Type: 
  Country: None (occurrence: None)
  Receive Date: 20081121
  Receipt Date: 20081118
  Transmission Date: 20090506
  Serious: No
  Sender: FDA-Public Use
  Company Number: DE-EISAI MEDICAL RESEARCH-E2090-00590-SPO-DE

PATIENT
  Age: 44 Year
  Sex: Female

DRUGS (1)
  1. ZONEGRAN [Suspect]
     Indication: EPILEPSY
     Dosage: UNKNOWN
     Route: 048
     Dates: start: 20081101

REACTIONS (1)
  - ANGIOEDEMA [None]
